FAERS Safety Report 23072828 (Version 2)
Quarter: 2023Q4

REPORT INFORMATION
  Report Type: Spontaneous
  Country: US (occurrence: US)
  Receive Date: 20231017
  Receipt Date: 20231020
  Transmission Date: 20240109
  Serious: Yes (Life-Threatening, Hospitalization, Other)
  Sender: FDA-Public Use
  Company Number: US-LUPIN PHARMACEUTICALS INC.-2023-08725

PATIENT
  Age: 59 Year
  Sex: Male

DRUGS (7)
  1. LISINOPRIL [Suspect]
     Active Substance: LISINOPRIL
     Indication: Product used for unknown indication
     Dosage: UNK, PILLS
     Route: 065
  2. METOPROLOL [Suspect]
     Active Substance: METOPROLOL
     Indication: Product used for unknown indication
     Dosage: UNK
     Route: 065
  3. GABAPENTIN [Suspect]
     Active Substance: GABAPENTIN
     Indication: Product used for unknown indication
     Dosage: UNK
     Route: 065
  4. AMLODIPINE [Suspect]
     Active Substance: AMLODIPINE BESYLATE
     Indication: Product used for unknown indication
     Dosage: UNK
     Route: 065
  5. LORAZEPAM [Suspect]
     Active Substance: LORAZEPAM
     Indication: Product used for unknown indication
     Dosage: UNK
     Route: 065
  6. MIRTAZAPINE [Suspect]
     Active Substance: MIRTAZAPINE
     Indication: Product used for unknown indication
     Dosage: UNK
     Route: 065
  7. DIPHENHYDRAMINE [Suspect]
     Active Substance: DIPHENHYDRAMINE
     Indication: Product used for unknown indication
     Dosage: UNK
     Route: 065

REACTIONS (8)
  - Intentional overdose [Unknown]
  - Tachycardia [Unknown]
  - Distributive shock [Recovering/Resolving]
  - Hypoxia [Recovering/Resolving]
  - Agitation [Recovering/Resolving]
  - Tachypnoea [Unknown]
  - Stridor [Recovering/Resolving]
  - Toxicity to various agents [Unknown]
